FAERS Safety Report 4588712-0 (Version None)
Quarter: 2005Q1

REPORT INFORMATION
  Report Type: 
  Country: None (occurrence: None)
  Receive Date: 20050214
  Receipt Date: 20050214
  Transmission Date: 20050727
  Serious: Yes (Death, Hospitalization)
  Sender: FDA-Public Use
  Company Number: None

PATIENT
  Sex: Female

DRUGS (12)
  1. VALGANCICLOVIR [Suspect]
     Indication: CYTOMEGALOVIRUS INFECTION
     Dosage: 450 MG QOD
     Dates: start: 20041210, end: 20041230
  2. VALGANCICLOVIR [Suspect]
     Indication: PROPHYLAXIS
     Dosage: 450 MG QOD
     Dates: start: 20041210, end: 20041230
  3. FK506 [Concomitant]
  4. MMF [Concomitant]
  5. PREDNISONE [Concomitant]
  6. BACTRIM [Concomitant]
  7. VALTREX [Concomitant]
  8. VELCADE [Concomitant]
  9. CIPROFLOXACIN [Concomitant]
  10. VANCOMYCIN [Concomitant]
  11. METRODIAZOLE [Concomitant]
  12. TEQUIN [Concomitant]

REACTIONS (4)
  - DIARRHOEA [None]
  - GENERAL PHYSICAL HEALTH DETERIORATION [None]
  - NAUSEA [None]
  - VOMITING [None]
